FAERS Safety Report 8210713-1 (Version None)
Quarter: 2012Q1

REPORT INFORMATION
  Report Type: 
  Country: None (occurrence: None)
  Receive Date: 20120315
  Receipt Date: 20120306
  Transmission Date: 20120608
  Serious: Yes (Other)
  Sender: FDA-Public Use
  Company Number: BR-BIOGENIDEC-2011BI028838

PATIENT
  Age: 32 Year
  Sex: Female
  Weight: 54 kg

DRUGS (2)
  1. AVONEX [Suspect]
     Indication: MULTIPLE SCLEROSIS
     Route: 030
     Dates: start: 20101001, end: 20110620
  2. NATELE (MULTIVITAMINS) [Concomitant]
     Indication: PREGNANCY

REACTIONS (1)
  - CAESAREAN SECTION [None]
